FAERS Safety Report 6922735-9 (Version None)
Quarter: 2010Q3

REPORT INFORMATION
  Report Type: 
  Country: None (occurrence: None)
  Receive Date: 20100813
  Receipt Date: 20100809
  Transmission Date: 20110219
  Serious: Yes (Other)
  Sender: FDA-Public Use
  Company Number: US-BAYER-201018508BCC

PATIENT
  Age: 30 Year
  Sex: Female
  Weight: 64 kg

DRUGS (2)
  1. ALKA SELTZER SPARKLING ORIGINAL [Suspect]
     Indication: NASOPHARYNGITIS
     Dosage: TOTAL DAILY DOSE: 2 DF  UNIT DOSE: 1 DF
     Route: 048
     Dates: start: 20100727
  2. ALESSE BIRTH CONTROL [Concomitant]
     Route: 065

REACTIONS (9)
  - HYPERSENSITIVITY [None]
  - INSOMNIA [None]
  - NASAL OEDEMA [None]
  - NASOPHARYNGITIS [None]
  - PHARYNGEAL OEDEMA [None]
  - PYREXIA [None]
  - RHINALGIA [None]
  - RHINORRHOEA [None]
  - SINUS CONGESTION [None]
